FAERS Safety Report 12472991 (Version 2)
Quarter: 2016Q2

REPORT INFORMATION
  Report Type: Spontaneous
  Country: IT (occurrence: IT)
  Receive Date: 20160616
  Receipt Date: 20160617
  Transmission Date: 20160815
  Serious: Yes (Other)
  Sender: FDA-Public Use
  Company Number: IT-BAYER-2016-113422

PATIENT
  Age: 60 Year
  Sex: Male

DRUGS (2)
  1. ACETYLSALICYLIC ACID (} 100 MG) [Suspect]
     Active Substance: ASPIRIN
     Indication: INTENTIONAL SELF-INJURY
     Dosage: 9 G, ONCE
     Route: 048
     Dates: start: 20160526, end: 20160526
  2. ATORVASTATIN [Suspect]
     Active Substance: ATORVASTATIN
     Indication: INTENTIONAL SELF-INJURY
     Dosage: 14 DF, ONCE
     Route: 048
     Dates: start: 20160526, end: 20160526

REACTIONS (2)
  - Drug abuse [Unknown]
  - Intentional self-injury [Unknown]

NARRATIVE: CASE EVENT DATE: 20160526
